FAERS Safety Report 9034446 (Version 1)
Quarter: 2013Q1

REPORT INFORMATION
  Report Type: Spontaneous
  Country: BE (occurrence: None)
  Receive Date: 20130114
  Receipt Date: 20130114
  Transmission Date: 20140127
  Serious: Yes (Hospitalization)
  Sender: FDA-Public Use
  Company Number: B0857494A

PATIENT
  Age: 38 Year
  Sex: Female

DRUGS (1)
  1. VENTOLIN UNSPECIFIED INHALER DEVICE (ALBUTEROL SULFATE) [Suspect]
     Indication: ASTHMA
     Route: 055

REACTIONS (4)
  - Acute myocardial infarction [None]
  - Arteriospasm coronary [None]
  - Myocardial ischaemia [None]
  - Passive smoking [None]
